FAERS Safety Report 13737827 (Version 1)
Quarter: 2017Q3

REPORT INFORMATION
  Report Type: Report from Study
  Country: US (occurrence: US)
  Receive Date: 20170710
  Receipt Date: 20170710
  Transmission Date: 20171127
  Serious: Yes (Hospitalization, Other)
  Sender: FDA-Public Use
  Company Number: US-SAOL THERAPEUTICS-2016SAO00926

PATIENT
  Sex: Female

DRUGS (5)
  1. COMPOUNDED BACLOFEN [Suspect]
     Active Substance: BACLOFEN
     Dosage: 76.02 ?G, \DAY
     Route: 037
     Dates: start: 20160714
  2. COMPOUNDED BACLOFEN [Suspect]
     Active Substance: BACLOFEN
     Dosage: 34.97 ?G, \DAY
     Route: 037
     Dates: start: 20160714
  3. BUPIVACAINE. [Suspect]
     Active Substance: BUPIVACAINE
     Dosage: 6.516 MG, \DAY
     Route: 037
     Dates: start: 20160714
  4. BUPIVACAINE. [Suspect]
     Active Substance: BUPIVACAINE
     Dosage: 2.998 MG, \DAY
     Route: 037
     Dates: start: 20160714
  5. HYDROMORPHONE [Suspect]
     Active Substance: HYDROMORPHONE

REACTIONS (5)
  - Hypoaesthesia [Recovered/Resolved]
  - Asthenia [Recovered/Resolved]
  - Somnolence [Recovered/Resolved]
  - Hypotension [Recovered/Resolved]
  - Device occlusion [Recovered/Resolved]

NARRATIVE: CASE EVENT DATE: 20160714
